FAERS Safety Report 19322332 (Version 1)
Quarter: 2021Q2

REPORT INFORMATION
  Report Type: Spontaneous
  Country: PL (occurrence: PL)
  Receive Date: 20210528
  Receipt Date: 20210528
  Transmission Date: 20210717
  Serious: Yes (Other)
  Sender: FDA-Public Use
  Company Number: PL-FLORIDAPHARMA-PL-2021FPPLIT00065

PATIENT
  Sex: Female

DRUGS (1)
  1. LEVETIRACETAM. [Suspect]
     Active Substance: LEVETIRACETAM
     Indication: STIFF PERSON SYNDROME
     Route: 065

REACTIONS (3)
  - Seizure [Unknown]
  - Product use in unapproved indication [Unknown]
  - Paradoxical drug reaction [Unknown]
